FAERS Safety Report 7217875-3 (Version None)
Quarter: 2011Q1

REPORT INFORMATION
  Report Type: 
  Country: None (occurrence: None)
  Receive Date: 20110110
  Receipt Date: 20110106
  Transmission Date: 20110831
  Serious: Yes (Hospitalization)
  Sender: FDA-Public Use
  Company Number: FR-BRISTOL-MYERS SQUIBB COMPANY-15474232

PATIENT
  Age: 73 Year
  Sex: Male

DRUGS (1)
  1. TAXOL [Suspect]
     Indication: BLADDER CANCER
     Route: 042
     Dates: start: 20100601, end: 20101027

REACTIONS (3)
  - HYPONATRAEMIA [None]
  - LOSS OF CONSCIOUSNESS [None]
  - CONVULSION [None]
